FAERS Safety Report 23737963 (Version 1)
Quarter: 2024Q2

REPORT INFORMATION
  Report Type: Report from Study
  Country: US (occurrence: US)
  Receive Date: 20240412
  Receipt Date: 20240412
  Transmission Date: 20240716
  Serious: No
  Sender: FDA-Public Use
  Company Number: US-BIOVITRUM-2024-US-005350

PATIENT
  Age: 61 Year
  Sex: Female

DRUGS (5)
  1. DOPTELET [Suspect]
     Active Substance: AVATROMBOPAG MALEATE
     Indication: Immune thrombocytopenia
     Dosage: 20 MG DAILY BY MOUTH
     Route: 048
     Dates: start: 202103
  2. CLARITIN [Concomitant]
     Active Substance: LORATADINE
     Indication: Product used for unknown indication
  3. MINERALS\VITAMINS [Concomitant]
     Active Substance: MINERALS\VITAMINS
     Indication: Product used for unknown indication
  4. METOPROLOL [Concomitant]
     Active Substance: METOPROLOL
     Indication: Product used for unknown indication
  5. VITAMIN D3 [Concomitant]
     Active Substance: CHOLECALCIFEROL
     Indication: Product used for unknown indication

REACTIONS (14)
  - Platelet count abnormal [Unknown]
  - Feeling abnormal [Unknown]
  - Sensory disturbance [Unknown]
  - Eye swelling [Recovered/Resolved]
  - Facial pain [Recovered/Resolved]
  - Sinusitis [Unknown]
  - Nasal congestion [Unknown]
  - Epistaxis [Unknown]
  - Nasal dryness [Unknown]
  - Contusion [Unknown]
  - Vitamin D decreased [Unknown]
  - Headache [Unknown]
  - Ear pain [Unknown]
  - Sleep disorder [Unknown]
